FAERS Safety Report 25587628 (Version 1)
Quarter: 2025Q3

REPORT INFORMATION
  Report Type: Spontaneous
  Country: US (occurrence: US)
  Receive Date: 20250721
  Receipt Date: 20250721
  Transmission Date: 20251021
  Serious: No
  Sender: MERCK SHARP & DOHME LLC
  Company Number: US-009507513-2310718

PATIENT
  Age: 26 Year
  Sex: Male

DRUGS (9)
  1. WINREVAIR [Suspect]
     Active Substance: SOTATERCEPT-CSRK
     Indication: Pulmonary arterial hypertension
     Dosage: 0.7MG/KG  EVERY 3 WEEKS.
     Route: 058
     Dates: start: 202408
  2. WINREVAIR [Suspect]
     Active Substance: SOTATERCEPT-CSRK
  3. WINREVAIR [Suspect]
     Active Substance: SOTATERCEPT-CSRK
  4. WINREVAIR [Suspect]
     Active Substance: SOTATERCEPT-CSRK
  5. TADALAFIL [Concomitant]
     Active Substance: TADALAFIL
  6. TYVASO [Concomitant]
     Active Substance: TREPROSTINIL
  7. OPSUMIT [Concomitant]
     Active Substance: MACITENTAN
  8. FUROSEMIDE [Concomitant]
     Active Substance: FUROSEMIDE
  9. LORATADINE [Concomitant]
     Active Substance: LORATADINE

REACTIONS (4)
  - Haemorrhage [Recovered/Resolved]
  - Blister [Recovered/Resolved]
  - Haemorrhage [Recovered/Resolved]
  - Blister [Recovered/Resolved]

NARRATIVE: CASE EVENT DATE: 20250501
